FAERS Safety Report 7419195-0 (Version None)
Quarter: 2011Q2

REPORT INFORMATION
  Report Type: 
  Country: None (occurrence: None)
  Receive Date: 20110415
  Receipt Date: 20110321
  Transmission Date: 20111010
  Serious: No
  Sender: FDA-Public Use
  Company Number: US-B.I. PHARMACEUTICALS,INC./RIDGEFIELD-2011-BP-01344BP

PATIENT
  Sex: Female

DRUGS (20)
  1. ZANTAC [Concomitant]
     Dosage: 300 MG
  2. SOMA [Concomitant]
  3. MULTI-VITAMIN [Concomitant]
  4. PRADAXA [Suspect]
     Indication: ATRIAL FIBRILLATION
     Dosage: 300 MG
     Route: 048
     Dates: start: 20110112
  5. PRADAXA [Suspect]
     Indication: ANTICOAGULANT THERAPY
  6. COZAAR [Concomitant]
     Dosage: 100 MG
  7. VALIUM [Concomitant]
  8. FLOVENT [Concomitant]
     Dosage: 4 PUF
  9. K-DUR (POTASSIUM) [Concomitant]
     Dosage: 100 MEQ
  10. SIMVASTATIN [Concomitant]
     Dosage: 20 MG
  11. MAGNESIUM [Concomitant]
  12. AMBIEN [Concomitant]
  13. CO Q-10 [Concomitant]
     Dosage: 100 MG
  14. PROVENT INHALER [Concomitant]
  15. LASIX [Concomitant]
     Dosage: 360 MG
  16. SPIRONOLACTONE [Concomitant]
     Dosage: 50 MG
  17. FLECINIDE [Concomitant]
     Dosage: 150 MG
  18. PRADAXA [Suspect]
     Indication: DRUG THERAPY CHANGED
  19. FLONASE [Concomitant]
  20. OXYCODONE HCL AND ACETAMINOPHEN [Concomitant]

REACTIONS (5)
  - GINGIVAL SWELLING [None]
  - STOMATITIS [None]
  - ABDOMINAL PAIN UPPER [None]
  - GASTROOESOPHAGEAL REFLUX DISEASE [None]
  - ABDOMINAL DISCOMFORT [None]
